FAERS Safety Report 6699433-2 (Version None)
Quarter: 2010Q2

REPORT INFORMATION
  Report Type: 
  Country: None (occurrence: None)
  Receive Date: 20100426
  Receipt Date: 20100409
  Transmission Date: 20101027
  Serious: Yes (Other)
  Sender: FDA-Public Use
  Company Number: 2010AL002276

PATIENT
  Sex: Male

DRUGS (13)
  1. GABAPENTIN [Suspect]
     Indication: DRUG USE FOR UNKNOWN INDICATION
  2. METFORMIN HCL [Concomitant]
     Indication: DRUG USE FOR UNKNOWN INDICATION
  3. HYDROCHLOROTHIAZIDE [Suspect]
     Indication: DRUG USE FOR UNKNOWN INDICATION
  4. FAMOTIDINE [Suspect]
     Indication: DRUG USE FOR UNKNOWN INDICATION
  5. LISINOPRIL [Concomitant]
  6. OMEPRAZOLE [Concomitant]
  7. FENOFIBRATE [Concomitant]
  8. CRESTOR [Concomitant]
  9. INSULIN [Concomitant]
  10. PLAVIX [Concomitant]
  11. TOPAMAX [Concomitant]
  12. ASPIRIN [Concomitant]
  13. COLACE [Concomitant]

REACTIONS (6)
  - CARDIAC DISORDER [None]
  - DIABETES MELLITUS [None]
  - DIABETIC NEUROPATHY [None]
  - HYPERTENSION [None]
  - NEPHROLITHIASIS [None]
  - THYROID DISORDER [None]
